FAERS Safety Report 6527706-2 (Version None)
Quarter: 2010Q1

REPORT INFORMATION
  Report Type: 
  Country: None (occurrence: None)
  Receive Date: 20100106
  Receipt Date: 20091228
  Transmission Date: 20100710
  Serious: Yes (Hospitalization)
  Sender: FDA-Public Use
  Company Number: US-BIOGENIDEC-2009BI027325

PATIENT
  Age: 65 Year
  Sex: Female

DRUGS (1)
  1. TYSABRI [Suspect]
     Indication: MULTIPLE SCLEROSIS
     Route: 042
     Dates: start: 20071119

REACTIONS (8)
  - BACK PAIN [None]
  - BALANCE DISORDER [None]
  - FALL [None]
  - GAIT DISTURBANCE [None]
  - MUSCLE SPASMS [None]
  - OSTEOARTHRITIS [None]
  - OSTEONECROSIS [None]
  - SPEECH DISORDER [None]
